FAERS Safety Report 7031540-7 (Version None)
Quarter: 2010Q4

REPORT INFORMATION
  Report Type: 
  Country: None (occurrence: None)
  Receive Date: 20101006
  Receipt Date: 20100922
  Transmission Date: 20110411
  Serious: Yes (Life-Threatening, Other)
  Sender: FDA-Public Use
  Company Number: JP-GENZYME-FLUD-1000265

PATIENT
  Age: 58 Year
  Sex: Female

DRUGS (11)
  1. FLUDARA [Suspect]
     Indication: BONE MARROW CONDITIONING REGIMEN
     Dosage: 25 MG/M2, QD
     Route: 065
  2. FLUDARA [Suspect]
     Dosage: 30 MG/M2, UNK
     Route: 065
  3. THYMOGLOBULIN [Concomitant]
     Indication: APLASTIC ANAEMIA
     Route: 042
  4. THYMOGLOBULIN [Concomitant]
     Indication: BONE MARROW CONDITIONING REGIMEN
     Dosage: 25 MG/KG, QD
     Route: 042
  5. CYCLOSPORINE [Concomitant]
     Indication: IMMUNOSUPPRESSION
     Route: 065
  6. CYCLOSPORINE [Concomitant]
     Indication: PROPHYLAXIS AGAINST GRAFT VERSUS HOST DISEASE
  7. CYCLOPHOSPHAMIDE [Concomitant]
     Indication: BONE MARROW CONDITIONING REGIMEN
     Dosage: 750 MG/M2, UNK
     Route: 065
  8. CYCLOPHOSPHAMIDE [Concomitant]
     Dosage: 2 G/M2, UNK
     Route: 065
  9. TOTAL BODY IRRADIATION 2GY [Concomitant]
     Indication: BONE MARROW CONDITIONING REGIMEN
     Route: 065
  10. METHOTREXATE [Concomitant]
     Indication: PROPHYLAXIS AGAINST GRAFT VERSUS HOST DISEASE
     Route: 065
  11. METHOTREXATE [Concomitant]
     Route: 065

REACTIONS (5)
  - CELLULITIS [None]
  - ENGRAFT FAILURE [None]
  - ESCHERICHIA SEPSIS [None]
  - STENOTROPHOMONAS SEPSIS [None]
  - THERAPEUTIC RESPONSE DECREASED [None]
